FAERS Safety Report 7485169-7 (Version None)
Quarter: 2011Q2

REPORT INFORMATION
  Report Type: 
  Country: None (occurrence: None)
  Receive Date: 20110517
  Receipt Date: 20101203
  Transmission Date: 20111010
  Serious: Yes (Other)
  Sender: FDA-Public Use
  Company Number: US-BAYER-201024397NA

PATIENT
  Age: 21 Year
  Sex: Female
  Weight: 59 kg

DRUGS (12)
  1. DROSPIRENONE AND ETHINYL ESTRADIOL [Suspect]
     Indication: ACNE
     Route: 048
     Dates: start: 20081216
  2. DROSPIRENONE AND ETHINYL ESTRADIOL [Suspect]
     Indication: PREMENSTRUAL SYNDROME
  3. YASMIN [Suspect]
     Indication: ACNE
     Route: 048
     Dates: start: 20040101, end: 20080101
  4. HERBAL PREPARATION [Concomitant]
     Indication: ABDOMINAL PAIN
     Dosage: UNK UNK, Q4HR
     Route: 048
     Dates: start: 20090504
  5. YAZ [Suspect]
     Indication: PREMENSTRUAL SYNDROME
  6. YASMIN [Suspect]
     Route: 048
     Dates: start: 20050617, end: 20071219
  7. NAPROXEN [Concomitant]
  8. DICYCLOMINE [Concomitant]
     Dosage: 1 U, Q4HR
     Route: 048
     Dates: start: 20090429
  9. OVCON-35 - 28 [Concomitant]
     Dates: start: 20050417
  10. YASMIN [Suspect]
     Indication: PREMENSTRUAL SYNDROME
     Route: 048
     Dates: start: 20080101
  11. YAZ [Suspect]
     Indication: ACNE
     Route: 048
     Dates: start: 20050101
  12. LEVORA 0.15/30-28 [Concomitant]
     Route: 048
     Dates: start: 20090208, end: 20091213

REACTIONS (2)
  - CHOLELITHIASIS [None]
  - CHOLECYSTITIS CHRONIC [None]
